FAERS Safety Report 7315336-4 (Version None)
Quarter: 2011Q1

REPORT INFORMATION
  Report Type: 
  Country: None (occurrence: None)
  Receive Date: 20110225
  Receipt Date: 20110221
  Transmission Date: 20110831
  Serious: Yes (Life-Threatening, Hospitalization)
  Sender: FDA-Public Use
  Company Number: US-B.I. PHARMACEUTICALS,INC./RIDGEFIELD-2011-BP-01550BP

PATIENT
  Age: 70 Year
  Sex: Female
  Weight: 39.01 kg

DRUGS (1)
  1. PRADAXA [Suspect]
     Route: 048
     Dates: end: 20110211

REACTIONS (1)
  - CEREBROVASCULAR ACCIDENT [None]
